FAERS Safety Report 11315774 (Version 4)
Quarter: 2015Q4

REPORT INFORMATION
  Report Type: Spontaneous
  Country: US (occurrence: US)
  Receive Date: 20150728
  Receipt Date: 20151224
  Transmission Date: 20160304
  Serious: Yes (Hospitalization, Other)
  Sender: FDA-Public Use
  Company Number: US-ROCHE-1613213

PATIENT
  Sex: Female
  Weight: 81.72 kg

DRUGS (2)
  1. ESBRIET [Suspect]
     Active Substance: PIRFENIDONE
     Indication: IDIOPATHIC PULMONARY FIBROSIS
     Dosage: 3 CAPSULES THRICE A DAY
     Route: 048
     Dates: start: 20150723
  2. ESBRIET [Suspect]
     Active Substance: PIRFENIDONE
     Dosage: 2 CAPS TID
     Route: 048

REACTIONS (9)
  - Suicidal ideation [Unknown]
  - Constipation [Unknown]
  - Sputum discoloured [Unknown]
  - Fatigue [Unknown]
  - Unevaluable event [Unknown]
  - Headache [Unknown]
  - Hyponatraemia [Unknown]
  - Nausea [Unknown]
  - Hypokalaemia [Unknown]
